FAERS Safety Report 16028096 (Version 5)
Quarter: 2021Q3

REPORT INFORMATION
  Report Type: Report from Study
  Country: TR (occurrence: TR)
  Receive Date: 20190304
  Receipt Date: 20210910
  Transmission Date: 20211014
  Serious: Yes (Hospitalization)
  Sender: FDA-Public Use
  Company Number: TR-ROCHE-2206897

PATIENT
  Age: 70 Year
  Sex: Female
  Weight: 58 kg

DRUGS (64)
  1. PACLITAXEL. [Suspect]
     Active Substance: PACLITAXEL
     Indication: OVARIAN CANCER
     Dosage: DOSE OF LAST PACLITAXEL ADMINISTERED PRIOR TO AE ONSET ON 05/OCT/2018: 273 MG?DOSE OF LAST PACLITAXE
     Route: 042
     Dates: start: 20180911
  2. NEUPOGEN [Concomitant]
     Active Substance: FILGRASTIM
     Indication: FEBRILE NEUTROPENIA
     Dates: start: 20180919, end: 20180920
  3. NEUPOGEN [Concomitant]
     Active Substance: FILGRASTIM
     Dates: start: 20181010, end: 20181012
  4. PERFALGAN [Concomitant]
     Active Substance: ACETAMINOPHEN
     Dates: start: 20181115, end: 20181115
  5. PERFALGAN [Concomitant]
     Active Substance: ACETAMINOPHEN
     Dates: start: 20190116, end: 20190116
  6. DEKORT [Concomitant]
     Active Substance: DEXAMETHASONE
     Indication: PREMEDICATION
     Route: 042
     Dates: start: 20181005, end: 20181005
  7. DEKORT [Concomitant]
     Active Substance: DEXAMETHASONE
     Route: 042
     Dates: start: 20181115, end: 20181115
  8. AVIL [Concomitant]
     Active Substance: PHENIRAMINE
     Indication: PREMEDICATION
     Dates: start: 20181005, end: 20181005
  9. AVIL [Concomitant]
     Active Substance: PHENIRAMINE
     Dates: start: 20181025, end: 20181025
  10. GEMZAR [Concomitant]
     Active Substance: GEMCITABINE HYDROCHLORIDE
     Dates: start: 20190927
  11. CISPLATIN. [Concomitant]
     Active Substance: CISPLATIN
     Indication: NEOPLASM MALIGNANT
     Dates: start: 20190927
  12. CAELYX [Concomitant]
     Active Substance: DOXORUBICIN HYDROCHLORIDE
     Dates: start: 20190927
  13. ALOXI [Concomitant]
     Active Substance: PALONOSETRON HYDROCHLORIDE
     Indication: PREMEDICATION
     Dates: start: 20181005, end: 20181005
  14. KYTRIL [Concomitant]
     Active Substance: GRANISETRON HYDROCHLORIDE
     Dates: start: 20181025, end: 20181025
  15. NEUPOGEN [Concomitant]
     Active Substance: FILGRASTIM
     Dates: start: 20190107, end: 20190108
  16. ULCURAN [Concomitant]
     Active Substance: RANITIDINE HYDROCHLORIDE
     Dates: start: 20181205, end: 20181205
  17. AMOKLAVIN [Concomitant]
     Indication: INFECTION
     Dates: start: 20190524, end: 20190531
  18. BEMIKS [Concomitant]
     Dates: start: 20190524, end: 20190524
  19. MIKOSTATIN [Concomitant]
     Active Substance: NYSTATIN
     Indication: INFECTION
     Dates: start: 20190521, end: 20190531
  20. MIKOSTATIN [Concomitant]
     Active Substance: NYSTATIN
     Indication: STOMATITIS
     Dates: start: 20190621, end: 20190712
  21. BEVACIZUMAB. [Suspect]
     Active Substance: BEVACIZUMAB
     Indication: OVARIAN CANCER
     Dosage: DATE OF MOST RECENT DOSE OF BEVACIZUMAB 05/DEC/2018: 900 MG?DATE OF MOST RECENT DOSE OF BEVACIZUMAB
     Route: 042
     Dates: start: 20181005
  22. DUPHALAC [Concomitant]
     Active Substance: LACTULOSE
     Indication: CONSTIPATION
     Dates: start: 20180927, end: 20181024
  23. KYTRIL [Concomitant]
     Active Substance: GRANISETRON HYDROCHLORIDE
     Dates: start: 20181226, end: 20181226
  24. PERFALGAN [Concomitant]
     Active Substance: ACETAMINOPHEN
     Indication: HYPERCALCAEMIA
     Dates: start: 20181005, end: 20181005
  25. AVIL [Concomitant]
     Active Substance: PHENIRAMINE
     Dates: start: 20181115, end: 20181115
  26. ULCURAN [Concomitant]
     Active Substance: RANITIDINE HYDROCHLORIDE
     Indication: PREMEDICATION
     Dates: start: 20181005, end: 20181005
  27. ZOMETA [Concomitant]
     Active Substance: ZOLEDRONIC ACID
     Dates: start: 20190116, end: 20190116
  28. REDOX?C [Concomitant]
     Dates: start: 20190524, end: 20190524
  29. KYTRIL [Concomitant]
     Active Substance: GRANISETRON HYDROCHLORIDE
     Indication: NAUSEA
     Dosage: RECEIVED ON 05/DEC/2018
     Dates: start: 20180912, end: 20190320
  30. AVIL [Concomitant]
     Active Substance: PHENIRAMINE
     Dates: start: 20181226, end: 20181226
  31. ZOMETA [Concomitant]
     Active Substance: ZOLEDRONIC ACID
     Dates: start: 20181115, end: 20181115
  32. ZOMETA [Concomitant]
     Active Substance: ZOLEDRONIC ACID
     Dates: start: 20190206, end: 20190206
  33. ALOXI [Concomitant]
     Active Substance: PALONOSETRON HYDROCHLORIDE
     Dates: start: 20181115, end: 20181115
  34. MINOSET [Concomitant]
     Active Substance: ACETAMINOPHEN
     Indication: PYREXIA
     Dates: start: 20180912, end: 20180914
  35. PERFALGAN [Concomitant]
     Active Substance: ACETAMINOPHEN
     Dates: start: 20181025, end: 20181025
  36. PERFALGAN [Concomitant]
     Active Substance: ACETAMINOPHEN
     Dates: start: 20181205, end: 20181205
  37. PERFALGAN [Concomitant]
     Active Substance: ACETAMINOPHEN
     Dates: start: 20181226, end: 20181226
  38. KALINOR [Concomitant]
     Dates: start: 20190320, end: 20190411
  39. PERFALGAN [Concomitant]
     Active Substance: ACETAMINOPHEN
     Dates: start: 20190206, end: 20190206
  40. DEKORT [Concomitant]
     Active Substance: DEXAMETHASONE
     Route: 042
     Dates: start: 20181025, end: 20181025
  41. DEKORT [Concomitant]
     Active Substance: DEXAMETHASONE
     Route: 042
     Dates: start: 20181205, end: 20181205
  42. AVIL [Concomitant]
     Active Substance: PHENIRAMINE
     Dates: start: 20190524, end: 20190524
  43. ULCURAN [Concomitant]
     Active Substance: RANITIDINE HYDROCHLORIDE
     Dates: start: 20181115, end: 20181115
  44. BACODERM [Concomitant]
     Indication: HERPES ZOSTER
     Dates: start: 20190802, end: 20190829
  45. GEMZAR [Concomitant]
     Active Substance: GEMCITABINE HYDROCHLORIDE
     Indication: NEOPLASM MALIGNANT
     Dates: start: 20190927
  46. CAELYX [Concomitant]
     Active Substance: DOXORUBICIN HYDROCHLORIDE
     Indication: NEOPLASM MALIGNANT
     Dates: start: 20190927
  47. ATEZOLIZUMAB. [Suspect]
     Active Substance: ATEZOLIZUMAB
     Indication: OVARIAN CANCER
     Dosage: DATE OF MOST RECENT DOSE OF ATEZOLIZUMAB PRIOR TO AE ONSET 05/OCT/2018: 1200MG?DATE OF MOST RECENT D
     Route: 042
     Dates: start: 20180911
  48. BARACLUDE [Concomitant]
     Active Substance: ENTECAVIR
     Indication: HEPATITIS B
     Dates: start: 20180908
  49. NEUPOGEN [Concomitant]
     Active Substance: FILGRASTIM
     Dates: start: 20181106, end: 20181107
  50. NEUPOGEN [Concomitant]
     Active Substance: FILGRASTIM
     Dates: start: 20181217, end: 20181219
  51. PERFALGAN [Concomitant]
     Active Substance: ACETAMINOPHEN
     Indication: LOWER GASTROINTESTINAL HAEMORRHAGE
     Dates: start: 20181008, end: 20181008
  52. DEKORT [Concomitant]
     Active Substance: DEXAMETHASONE
     Route: 042
     Dates: start: 20181226, end: 20181226
  53. AVIL [Concomitant]
     Active Substance: PHENIRAMINE
     Dates: start: 20181205, end: 20181205
  54. ULCURAN [Concomitant]
     Active Substance: RANITIDINE HYDROCHLORIDE
     Dates: start: 20181025, end: 20181025
  55. ZOMETA [Concomitant]
     Active Substance: ZOLEDRONIC ACID
     Indication: HYPERCALCAEMIA
     Dates: start: 20181005, end: 20181005
  56. ZOMETA [Concomitant]
     Active Substance: ZOLEDRONIC ACID
     Dates: start: 20181205, end: 20181205
  57. ZOMETA [Concomitant]
     Active Substance: ZOLEDRONIC ACID
     Dates: start: 20181226, end: 20181226
  58. BENEXOL [Concomitant]
     Active Substance: CYANOCOBALAMIN\PYRIDOXINE\THIAMINE
     Indication: HERPES ZOSTER
     Dates: start: 20190805, end: 20190829
  59. CARBOPLATIN. [Suspect]
     Active Substance: CARBOPLATIN
     Indication: OVARIAN CANCER
     Dosage: DOSE TO ACHIEVE A TARGET AREA UNDER THE CURVE (AUC) OF 6 (MG/ML*MIN) ON DAY 1 OF EACH 21?DAY CYCLE F
     Route: 042
     Dates: start: 20180911
  60. ULCURAN [Concomitant]
     Active Substance: RANITIDINE HYDROCHLORIDE
     Dates: start: 20181226, end: 20181226
  61. ULCURAN [Concomitant]
     Active Substance: RANITIDINE HYDROCHLORIDE
     Dates: start: 20190524, end: 20190524
  62. ZOMETA [Concomitant]
     Active Substance: ZOLEDRONIC ACID
     Dates: start: 20181025, end: 20181025
  63. LYRICA [Concomitant]
     Active Substance: PREGABALIN
     Dates: start: 20190426
  64. VALTREX [Concomitant]
     Active Substance: VALACYCLOVIR HYDROCHLORIDE
     Indication: HERPES ZOSTER
     Dates: start: 20190802, end: 20190829

REACTIONS (2)
  - Hyperparathyroidism [Recovered/Resolved]
  - Hypertension [Recovering/Resolving]

NARRATIVE: CASE EVENT DATE: 20181014
